FAERS Safety Report 25893226 (Version 2)
Quarter: 2025Q4

REPORT INFORMATION
  Report Type: Spontaneous
  Country: US (occurrence: US)
  Receive Date: 20251008
  Receipt Date: 20251013
  Transmission Date: 20260117
  Serious: No
  Sender: SANDOZ
  Company Number: US-SANDOZ-SDZ2025US071658

PATIENT
  Sex: Male

DRUGS (1)
  1. ALPRAZOLAM [Suspect]
     Active Substance: ALPRAZOLAM
     Indication: Product used for unknown indication
     Dosage: ALPRAZOLAM TABLETS 1 MG
     Route: 065

REACTIONS (8)
  - Palpitations [Unknown]
  - Dissociative disorder [Unknown]
  - Confusional state [Unknown]
  - Burning sensation [Unknown]
  - Dizziness [Unknown]
  - Product quality issue [Unknown]
  - Product taste abnormal [Unknown]
  - Product use complaint [Unknown]
